FAERS Safety Report 5302270-4 (Version None)
Quarter: 2007Q2

REPORT INFORMATION
  Report Type: 
  Country: None (occurrence: None)
  Receive Date: 20070412
  Receipt Date: 20070330
  Transmission Date: 20071010
  Serious: Yes (Other)
  Sender: FDA-Public Use
  Company Number: T200700372

PATIENT
  Age: 44 Year
  Sex: Female

DRUGS (1)
  1. OPTIRAY PBP (IOVERSOL) SOLUTION FOR INJETION, 320 [Suspect]
     Indication: COMPUTERISED TOMOGRAM ABDOMEN
     Dosage: 100 ML, SINGLE, INTRAVENOUS
     Route: 042

REACTIONS (3)
  - PARAESTHESIA ORAL [None]
  - PHARYNGEAL OEDEMA [None]
  - THROAT IRRITATION [None]
